FAERS Safety Report 4945288-3 (Version None)
Quarter: 2006Q1

REPORT INFORMATION
  Report Type: 
  Country: None (occurrence: None)
  Receive Date: 20060110
  Receipt Date: 20050805
  Transmission Date: 20060701
  Serious: Yes (Hospitalization)
  Sender: FDA-Public Use
  Company Number: PHEH2005US08711

PATIENT
  Age: 19 Year
  Sex: Female

DRUGS (3)
  1. FOCALIN [Suspect]
     Indication: ATTENTION DEFICIT/HYPERACTIVITY DISORDER
     Dosage: 2.5 QAM ; 7.5 QAM
     Dates: end: 20050731
  2. FOCALIN [Suspect]
     Indication: ATTENTION DEFICIT/HYPERACTIVITY DISORDER
     Dosage: 2.5 QAM ; 7.5 QAM
     Dates: end: 20050731
  3. INSULIN PUMP (INSULIN) [Concomitant]

REACTIONS (6)
  - AMNESIA [None]
  - ASTHENIA [None]
  - CONVULSION [None]
  - DISORIENTATION [None]
  - LOSS OF CONSCIOUSNESS [None]
  - TONGUE BITING [None]
